FAERS Safety Report 4689091-0 (Version None)
Quarter: 2005Q2

REPORT INFORMATION
  Report Type: 
  Country: None (occurrence: None)
  Receive Date: 20050613
  Receipt Date: 20050520
  Transmission Date: 20051028
  Serious: Yes (Congenital Anomaly)
  Sender: FDA-Public Use
  Company Number: SE-ABBOTT-05P-150-0301148-00

PATIENT
  Sex: Male

DRUGS (1)
  1. ERGENYL RETARD [Suspect]
     Indication: DRUG EXPOSURE DURING PREGNANCY

REACTIONS (24)
  - ACTIVATED PARTIAL THROMBOPLASTIN TIME [None]
  - BLOOD BILIRUBIN DECREASED [None]
  - COAGULOPATHY [None]
  - COMMUNICATION DISORDER [None]
  - CONGENITAL ANOMALY [None]
  - CONGENITAL COAGULOPATHY [None]
  - CONGENITAL FOOT MALFORMATION [None]
  - DEAFNESS UNILATERAL [None]
  - DEVELOPMENTAL COORDINATION DISORDER [None]
  - DRUG EXPOSURE DURING PREGNANCY [None]
  - EAR MALFORMATION [None]
  - EATING DISORDER [None]
  - FACIAL DYSMORPHISM [None]
  - FOETAL VALPROATE SYNDROME [None]
  - HYPERSOMNIA [None]
  - HYPOGLYCAEMIA NEONATAL [None]
  - HYPOSPADIAS [None]
  - INFECTION IN AN IMMUNOCOMPROMISED HOST [None]
  - MYOPIA [None]
  - PALLOR [None]
  - PROTHROMBIN LEVEL INCREASED [None]
  - PSYCHOMOTOR RETARDATION [None]
  - SPEECH DISORDER DEVELOPMENTAL [None]
  - SUBDURAL HAEMORRHAGE NEONATAL [None]
